FAERS Safety Report 6029033-9 (Version None)
Quarter: 2009Q1

REPORT INFORMATION
  Report Type: 
  Country: None (occurrence: None)
  Receive Date: 20090106
  Receipt Date: 20081224
  Transmission Date: 20090719
  Serious: Yes (Other)
  Sender: FDA-Public Use
  Company Number: FR-ELI_LILLY_AND_COMPANY-FR200810000160

PATIENT
  Age: 40 Year
  Sex: Male
  Weight: 61 kg

DRUGS (5)
  1. CYMBALTA [Suspect]
     Indication: DEPRESSION
     Dosage: 60 MG, DAILY (1/D)
     Route: 048
     Dates: start: 20080313, end: 20081002
  2. SOLUPRED [Concomitant]
     Indication: BRAIN OEDEMA
     Dosage: 120 MG, DAILY (1/D)
     Route: 065
     Dates: start: 20080623
  3. PRAXILENE [Concomitant]
     Dosage: UNK, UNKNOWN
     Route: 065
  4. CARDEGIC [Concomitant]
     Dosage: UNK, UNKNOWN
     Route: 065
  5. TRANXENE [Concomitant]
     Dosage: UNK, UNKNOWN
     Route: 065

REACTIONS (3)
  - ABDOMINAL PAIN UPPER [None]
  - HEPATOCELLULAR INJURY [None]
  - JAUNDICE [None]
